FAERS Safety Report 7499359-0 (Version None)
Quarter: 2011Q2

REPORT INFORMATION
  Report Type: 
  Country: None (occurrence: None)
  Receive Date: 20110524
  Receipt Date: 20110517
  Transmission Date: 20111010
  Serious: Yes (Hospitalization, Other)
  Sender: FDA-Public Use
  Company Number: RU-SANOFI-AVENTIS-2011SA031365

PATIENT
  Age: 34 Year
  Sex: Female

DRUGS (3)
  1. ARAVA [Suspect]
     Route: 048
  2. FUROSEMIDE [Suspect]
     Indication: WEIGHT CONTROL
     Dosage: DOSE: 2-3 TABLETS WEEKLY
     Route: 048
     Dates: start: 20080101
  3. METHOTREXATE [Suspect]
     Route: 030

REACTIONS (13)
  - GOUTY ARTHRITIS [None]
  - ARTHRITIS [None]
  - GOUTY TOPHUS [None]
  - SYNOVITIS [None]
  - DIZZINESS [None]
  - JOINT STIFFNESS [None]
  - URATE NEPHROPATHY [None]
  - NEPHROLITHIASIS [None]
  - NAUSEA [None]
  - ARTHRALGIA [None]
  - DEFORMITY [None]
  - RENAL FAILURE CHRONIC [None]
  - HYPERURICAEMIA [None]
